FAERS Safety Report 7806373-1 (Version None)
Quarter: 2011Q4

REPORT INFORMATION
  Report Type: 
  Country: None (occurrence: None)
  Receive Date: 20111011
  Receipt Date: 20110929
  Transmission Date: 20120403
  Serious: Yes (Other)
  Sender: FDA-Public Use
  Company Number: JP-UCBSA-042632

PATIENT
  Sex: Female

DRUGS (1)
  1. XYZAL [Suspect]
     Indication: HYPERSENSITIVITY
     Dosage: NO OF SEPARATE DOSAGES: 1 TAB

REACTIONS (1)
  - RESPIRATORY FAILURE [None]
